FAERS Safety Report 21305275 (Version 1)
Quarter: 2022Q3

REPORT INFORMATION
  Report Type: Other
  Country: JP (occurrence: None)
  Receive Date: 20220907
  Receipt Date: 20220907
  Transmission Date: 20221027
  Serious: Yes (Hospitalization)
  Sender: FDA-Public Use
  Company Number: JP-Square-000087

PATIENT
  Age: 73 Year
  Sex: Male

DRUGS (2)
  1. ACYCLOVIR [Suspect]
     Active Substance: ACYCLOVIR
     Indication: Ophthalmic herpes zoster
     Dosage: THREE TIMES A DAY
     Route: 047
     Dates: start: 20220527
  2. AMENAMEVIR [Concomitant]
     Active Substance: AMENAMEVIR
     Indication: Ophthalmic herpes zoster
     Dosage: 400 MG FOR ONE WEEK
     Dates: start: 20220527

REACTIONS (3)
  - Eyelid ptosis [Recovered/Resolved]
  - Eye movement disorder [Recovered/Resolved]
  - Pleocytosis [Recovered/Resolved]

NARRATIVE: CASE EVENT DATE: 20220528
